FAERS Safety Report 16849428 (Version 4)
Quarter: 2019Q4

REPORT INFORMATION
  Report Type: Spontaneous
  Country: GB (occurrence: GB)
  Receive Date: 20190925
  Receipt Date: 20191203
  Transmission Date: 20200122
  Serious: Yes (Hospitalization, Other)
  Sender: FDA-Public Use
  Company Number: PHHY2019GB219020

PATIENT
  Age: 12 Year
  Sex: Male

DRUGS (4)
  1. IMATINIB. [Suspect]
     Active Substance: IMATINIB MESYLATE
     Indication: GRAFT VERSUS HOST DISEASE IN SKIN
  2. IMATINIB. [Suspect]
     Active Substance: IMATINIB MESYLATE
     Indication: ACUTE GRAFT VERSUS HOST DISEASE IN LIVER
  3. IMATINIB. [Suspect]
     Active Substance: IMATINIB MESYLATE
     Indication: GRAFT VERSUS HOST DISEASE IN GASTROINTESTINAL TRACT
     Dosage: UNK
     Route: 065
     Dates: start: 201710
  4. IMATINIB. [Suspect]
     Active Substance: IMATINIB MESYLATE
     Indication: GRAFT VERSUS HOST DISEASE IN EYE

REACTIONS (18)
  - Cardiomegaly [Recovered/Resolved]
  - Vomiting [Recovered/Resolved]
  - Off label use [Recovered/Resolved]
  - Breath sounds abnormal [Unknown]
  - Sinus tachycardia [Unknown]
  - Productive cough [Recovered/Resolved]
  - Tachycardia [Recovered/Resolved]
  - Pleural effusion [Unknown]
  - Respiratory failure [Unknown]
  - Product use in unapproved indication [Unknown]
  - Tachypnoea [Recovered/Resolved]
  - Decreased appetite [Recovered/Resolved]
  - Grunting [Recovered/Resolved]
  - Hepatomegaly [Unknown]
  - Chest pain [Recovered/Resolved]
  - Right ventricular diastolic collapse [Recovered/Resolved]
  - Pericardial effusion [Recovered/Resolved]
  - Dyspnoea [Recovered/Resolved]
